FAERS Safety Report 19314211 (Version 1)
Quarter: 2021Q2

REPORT INFORMATION
  Report Type: Other
  Country: CA (occurrence: CA)
  Receive Date: 20210527
  Receipt Date: 20210527
  Transmission Date: 20210717
  Serious: Yes (Other)
  Sender: FDA-Public Use
  Company Number: CA-APOTEX-2021AP012338

PATIENT
  Age: 15 Year
  Sex: Male
  Weight: 127 kg

DRUGS (14)
  1. OLANZAPINE. [Suspect]
     Active Substance: OLANZAPINE
     Indication: BEHAVIOUR DISORDER
  2. QUETIAPINE. [Suspect]
     Active Substance: QUETIAPINE
     Indication: AUTISM SPECTRUM DISORDER
  3. SERTRALINE [Suspect]
     Active Substance: SERTRALINE HYDROCHLORIDE
     Indication: BEHAVIOUR DISORDER
  4. ZIPRASIDONE. [Concomitant]
     Active Substance: ZIPRASIDONE
     Indication: INTELLECTUAL DISABILITY
     Dosage: 40 MILLIGRAM, BID
     Route: 065
  5. QUETIAPINE. [Suspect]
     Active Substance: QUETIAPINE
     Indication: INTELLECTUAL DISABILITY
     Dosage: 50 MILLIGRAM, QD
     Route: 048
  6. OLANZAPINE. [Suspect]
     Active Substance: OLANZAPINE
     Indication: INTELLECTUAL DISABILITY
     Dosage: 10 MILLIGRAM, BID
     Route: 065
  7. QUETIAPINE. [Suspect]
     Active Substance: QUETIAPINE
     Indication: BEHAVIOUR DISORDER
     Dosage: 500 MILLIGRAM, QD
     Route: 048
  8. ZIPRASIDONE. [Concomitant]
     Active Substance: ZIPRASIDONE
     Indication: AUTISM SPECTRUM DISORDER
  9. CLONIDINE. [Suspect]
     Active Substance: CLONIDINE
     Indication: BEHAVIOUR DISORDER
  10. SERTRALINE [Suspect]
     Active Substance: SERTRALINE HYDROCHLORIDE
     Indication: AUTISM SPECTRUM DISORDER
  11. CLONIDINE. [Suspect]
     Active Substance: CLONIDINE
     Indication: INTELLECTUAL DISABILITY
     Dosage: 0.1 MILLIGRAM, BID
     Route: 065
  12. CLONIDINE. [Suspect]
     Active Substance: CLONIDINE
     Indication: AUTISM SPECTRUM DISORDER
  13. SERTRALINE [Suspect]
     Active Substance: SERTRALINE HYDROCHLORIDE
     Indication: INTELLECTUAL DISABILITY
     Dosage: 100 MILLIGRAM, QD
     Route: 065
  14. LAMOTRIGINE. [Suspect]
     Active Substance: LAMOTRIGINE
     Indication: BEHAVIOUR DISORDER
     Dosage: 25 MILLIGRAM, BID
     Route: 065

REACTIONS (6)
  - Obesity [Recovered/Resolved]
  - Product prescribing issue [Recovered/Resolved]
  - Product use issue [Recovered/Resolved]
  - Overweight [Recovered/Resolved]
  - Aggression [Recovered/Resolved]
  - Blood prolactin increased [Recovered/Resolved]
